FAERS Safety Report 12893116 (Version 8)
Quarter: 2018Q2

REPORT INFORMATION
  Report Type: Spontaneous
  Country: GB (occurrence: GB)
  Receive Date: 20161028
  Receipt Date: 20180615
  Transmission Date: 20180711
  Serious: Yes (Life-Threatening, Hospitalization, Disabling, Other)
  Sender: FDA-Public Use
  Company Number: GB-PFIZER INC-2016498694

PATIENT
  Age: 42 Year
  Sex: Female
  Weight: 98 kg

DRUGS (21)
  1. PERTUZUMAB. [Suspect]
     Active Substance: PERTUZUMAB
     Dosage: 840 MG FIRST DOSE THEN 420MG
     Route: 042
     Dates: start: 20160718, end: 20160830
  2. ONDANSETRON [Concomitant]
     Active Substance: ONDANSETRON
     Indication: NAUSEA
     Dosage: 4 MG, UNK (TABLET)
     Route: 048
     Dates: start: 20160908
  3. CYCLIZINE [Concomitant]
     Active Substance: CYCLIZINE
     Indication: NAUSEA
     Dosage: 50 MG, AS NEEDED (TABLET)
     Route: 048
     Dates: start: 20160908
  4. PARACETAMOL [Concomitant]
     Active Substance: ACETAMINOPHEN
     Indication: PAIN
     Dosage: 1 G, UNK (TABLET)
     Route: 048
     Dates: start: 20160908
  5. CITALOPRAM /00582603/ [Concomitant]
     Active Substance: CITALOPRAM HYDROCHLORIDE
     Indication: DEPRESSION
     Dosage: 20 MG, DAILY (TABLET)
     Route: 048
     Dates: start: 20160921
  6. LOPERAMIDE [Concomitant]
     Active Substance: LOPERAMIDE
     Indication: DIARRHOEA
     Dosage: 2 MG (TABLET), UPTO 4 TIMES A DAY IF NEEDED FOR LOOSE
     Route: 048
     Dates: start: 20161230
  7. TRASTUZUMAB. [Suspect]
     Active Substance: TRASTUZUMAB
     Dosage: 609 MG, MONTHLY (SOLUTION FOR INFUSION)
     Route: 042
     Dates: start: 20160830, end: 20160830
  8. DOCETAXEL. [Suspect]
     Active Substance: DOCETAXEL
     Indication: BREAST CANCER METASTATIC
     Dosage: 160 MG, SINGLE LOADING DOSE
     Route: 042
     Dates: start: 20160718, end: 20160718
  9. PERTUZUMAB. [Suspect]
     Active Substance: PERTUZUMAB
     Dosage: 420 MG, MONTHLY (SOLUTION FOR INFUSION)
     Route: 042
     Dates: start: 20160808, end: 20160830
  10. TRASTUZUMAB. [Suspect]
     Active Substance: TRASTUZUMAB
     Dosage: 798MG LOADING THEN 609MG
     Route: 042
     Dates: start: 20160718, end: 20160830
  11. MAGNASPARTATE [Concomitant]
     Indication: BLOOD MAGNESIUM DECREASED
     Dosage: 10 MMOL, UNK
     Dates: start: 20160908
  12. DIHYDROCODEINE [Concomitant]
     Active Substance: DIHYDROCODEINE
     Indication: PAIN
     Dosage: 30 MG, UNK (TABLET)
     Route: 048
     Dates: start: 20160908
  13. DOCETAXEL. [Suspect]
     Active Substance: DOCETAXEL
     Dosage: 160 MG, UNK
     Route: 042
     Dates: start: 20160718, end: 20160830
  14. TRASTUZUMAB. [Suspect]
     Active Substance: TRASTUZUMAB
     Dosage: 588 MG, MONTHLY (SOLUTION FOR INFUSION)
     Route: 042
     Dates: start: 20160808, end: 20160808
  15. TINZAPARIN [Concomitant]
     Active Substance: TINZAPARIN
     Dosage: UNK
  16. PERTUZUMAB. [Suspect]
     Active Substance: PERTUZUMAB
     Indication: BREAST CANCER METASTATIC
     Dosage: 840MG LOADING DOSE (SOLUTION FOR INFUSION)
     Route: 042
     Dates: start: 20160718
  17. TRASTUZUMAB. [Suspect]
     Active Substance: TRASTUZUMAB
     Indication: BREAST CANCER METASTATIC
     Dosage: 798 MG, SINGLE LOADING SOLUTION FOR INFUSION
     Route: 042
     Dates: start: 20160718, end: 20160718
  18. FLUCLOXACILLIN [Concomitant]
     Active Substance: FLUCLOXACILLIN
     Dosage: UNK
  19. DOXYCYCLINE. [Concomitant]
     Active Substance: DOXYCYCLINE
     Indication: RASH
     Dosage: 100 MG, UNK
     Route: 048
     Dates: start: 20160803, end: 20160821
  20. DOCETAXEL. [Suspect]
     Active Substance: DOCETAXEL
     Dosage: 160 MG, MONTHLY
     Route: 042
     Dates: start: 20160808, end: 20160808
  21. DOCETAXEL. [Suspect]
     Active Substance: DOCETAXEL
     Dosage: 164 MG, MONTHLY
     Route: 042
     Dates: start: 20160830, end: 20160830

REACTIONS (10)
  - Neutropenic sepsis [Not Recovered/Not Resolved]
  - Abdominal pain [Recovered/Resolved with Sequelae]
  - Vomiting [Recovered/Resolved with Sequelae]
  - Pneumonia [Recovered/Resolved]
  - Colitis [Recovering/Resolving]
  - Perforation [Recovering/Resolving]
  - Peritonitis [Recovering/Resolving]
  - Rash [Recovered/Resolved]
  - Diarrhoea [Recovering/Resolving]
  - Colitis ischaemic [Not Recovered/Not Resolved]

NARRATIVE: CASE EVENT DATE: 20160803
